APPROVED DRUG PRODUCT: MIACALCIN
Active Ingredient: CALCITONIN SALMON
Strength: 200 IU/SPRAY **Federal Register determination that product was not discontinued or withdrawn for safety or effectiveness reasons**
Dosage Form/Route: SPRAY, METERED;NASAL
Application: N020313 | Product #002
Applicant: PHARMOBEDIENT CONSULTING LLC
Approved: Aug 17, 1995 | RLD: Yes | RS: No | Type: DISCN